FAERS Safety Report 6358966-9 (Version None)
Quarter: 2009Q3

REPORT INFORMATION
  Report Type: 
  Country: None (occurrence: None)
  Receive Date: 20090914
  Receipt Date: 20090805
  Transmission Date: 20100115
  Serious: Yes (Hospitalization)
  Sender: FDA-Public Use
  Company Number: JP-GUERBET-20090025

PATIENT
  Age: 50 Year
  Sex: Male

DRUGS (12)
  1. HEXABRIX [Suspect]
     Indication: ANGIOGRAM CEREBRAL
     Dosage: 40, ML MILLILITRE (S), 1, 1,
     Route: 013
     Dates: start: 20090805, end: 20090805
  2. NICARDIPINE HYDROCHLORIDE [Concomitant]
  3. FAMOTIDINE [Concomitant]
  4. INSULIN [Concomitant]
  5. SOLITA-T [Concomitant]
  6. POTASSIUM - CHLORIDE [Concomitant]
  7. LACTEC [Concomitant]
  8. NIZOFENONE FUMARATE [Concomitant]
  9. PENTAZOCINE [Concomitant]
  10. DIAZEPAM [Concomitant]
  11. HEPARIN [Concomitant]
  12. CYANOCOBALAMIN [Concomitant]

REACTIONS (4)
  - ERYTHEMA [None]
  - HYPERHIDROSIS [None]
  - SHOCK [None]
  - TACHYCARDIA [None]
